FAERS Safety Report 10314807 (Version 1)
Quarter: 2014Q3

REPORT INFORMATION
  Report Type: Spontaneous
  Country: GB (occurrence: GB)
  Receive Date: 20140718
  Receipt Date: 20140718
  Transmission Date: 20150326
  Serious: Yes (Other)
  Sender: FDA-Public Use
  Company Number: GB-MYLANLABS-2014S1016315

PATIENT
  Sex: Female

DRUGS (17)
  1. OXYCONTIN [Concomitant]
     Active Substance: OXYCODONE HYDROCHLORIDE
  2. TACROLIMUS. [Interacting]
     Active Substance: TACROLIMUS
     Indication: RENAL TRANSPLANT
     Dosage: 2 MG, BID
  3. PREDNISOLONE. [Interacting]
     Active Substance: PREDNISOLONE
     Indication: PREMEDICATION
     Dosage: 5 MG, UNK
  4. GABAPENTIN. [Concomitant]
     Active Substance: GABAPENTIN
  5. VINCRISTINE [Interacting]
     Active Substance: VINCRISTINE
     Indication: DIFFUSE LARGE B-CELL LYMPHOMA
     Dates: start: 20140620
  6. TACROLIMUS. [Interacting]
     Active Substance: TACROLIMUS
     Indication: RENAL TRANSPLANT
     Dosage: 1.5 MG, BID
     Dates: start: 20140618
  7. PREDNISOLONE. [Interacting]
     Active Substance: PREDNISOLONE
     Indication: PREMEDICATION
     Dosage: 80 MG, UNK
     Dates: start: 20140616
  8. ONDANSETRON [Concomitant]
     Active Substance: ONDANSETRON
  9. PARACETAMOL [Concomitant]
     Active Substance: ACETAMINOPHEN
  10. TACROLIMUS. [Interacting]
     Active Substance: TACROLIMUS
     Indication: RENAL TRANSPLANT
     Dosage: 1 MG, BID
  11. OMEPRAZOLE. [Concomitant]
     Active Substance: OMEPRAZOLE
  12. AZATHIOPRINE. [Suspect]
     Active Substance: AZATHIOPRINE
     Dates: end: 20140620
  13. CYCLOPHOSPHAMIDE. [Interacting]
     Active Substance: CYCLOPHOSPHAMIDE
     Indication: DIFFUSE LARGE B-CELL LYMPHOMA
     Dates: start: 20140620
  14. RITUXIMAB [Interacting]
     Active Substance: RITUXIMAB
     Indication: DIFFUSE LARGE B-CELL LYMPHOMA
     Dates: start: 20140620
  15. ALFACALCIDOL [Concomitant]
     Active Substance: ALFACALCIDOL
  16. CYCLIZINE [Concomitant]
     Active Substance: CYCLIZINE
  17. DALTEPARIN [Concomitant]
     Active Substance: DALTEPARIN
     Indication: PROPHYLAXIS

REACTIONS (2)
  - Drug interaction [Unknown]
  - Immunosuppressant drug level increased [Unknown]
